FAERS Safety Report 5414214-5 (Version None)
Quarter: 2007Q3

REPORT INFORMATION
  Report Type: 
  Country: None (occurrence: None)
  Receive Date: 20070814
  Receipt Date: 20070802
  Transmission Date: 20080115
  Serious: Yes (Other)
  Sender: FDA-Public Use
  Company Number: US-PFIZER INC-2007065341

PATIENT
  Sex: Female

DRUGS (4)
  1. CHANTIX [Suspect]
     Indication: SMOKING CESSATION THERAPY
     Route: 048
  2. NEURONTIN [Concomitant]
  3. SEROQUEL [Concomitant]
  4. CELEXA [Concomitant]

REACTIONS (4)
  - ANOVULATORY CYCLE [None]
  - ENDOMETRIOSIS [None]
  - METRORRHAGIA [None]
  - SKIN DISORDER [None]
